FAERS Safety Report 5853958-8 (Version None)
Quarter: 2008Q3

REPORT INFORMATION
  Report Type: 
  Country: None (occurrence: None)
  Receive Date: 20080822
  Receipt Date: 20080814
  Transmission Date: 20090109
  Serious: Yes (Other)
  Sender: FDA-Public Use
  Company Number: B0533916A

PATIENT
  Age: 26 Year
  Sex: Female

DRUGS (9)
  1. LAMOTRIGINE [Suspect]
  2. TOPIRAMATE [Concomitant]
     Indication: DRUG USE FOR UNKNOWN INDICATION
  3. BACLOFEN [Concomitant]
     Indication: DRUG USE FOR UNKNOWN INDICATION
     Dosage: 10MG THREE TIMES PER DAY
  4. SILYMARIN [Concomitant]
  5. SLOW-K [Concomitant]
  6. CLONAZEPAM [Concomitant]
  7. MIDAZOLAM HCL [Concomitant]
  8. DOBUTAMINE HYDROCHLORIDE [Concomitant]
  9. THYROXINE [Concomitant]

REACTIONS (15)
  - AGITATION [None]
  - APHASIA [None]
  - BRAIN INJURY [None]
  - CONDITION AGGRAVATED [None]
  - CONVULSION [None]
  - FATIGUE [None]
  - HEART RATE DECREASED [None]
  - ILL-DEFINED DISORDER [None]
  - IRRITABILITY [None]
  - LETHARGY [None]
  - MUSCLE TWITCHING [None]
  - MUSCULOSKELETAL STIFFNESS [None]
  - PARTIAL SEIZURES [None]
  - SALIVARY HYPERSECRETION [None]
  - SIMPLE PARTIAL SEIZURES [None]
